FAERS Safety Report 18319934 (Version 2)
Quarter: 2020Q4

REPORT INFORMATION
  Report Type: Spontaneous
  Country: US (occurrence: US)
  Receive Date: 20200928
  Receipt Date: 20201126
  Transmission Date: 20210113
  Serious: No
  Sender: FDA-Public Use
  Company Number: US-ASTRAZENECA-2020SF15923

PATIENT
  Age: 24707 Day
  Sex: Female
  Weight: 76.7 kg

DRUGS (2)
  1. NYSTATIN. [Concomitant]
     Active Substance: NYSTATIN
     Indication: CANDIDA INFECTION
     Dosage: 1TSP FOUR TIMES A DAY
     Route: 048
     Dates: start: 20200902
  2. SYMBICORT [Suspect]
     Active Substance: BUDESONIDE\FORMOTEROL FUMARATE DIHYDRATE
     Indication: CHRONIC OBSTRUCTIVE PULMONARY DISEASE
     Dosage: 160/4.5 TWO PUFFS TWICE EACH DAY
     Route: 055
     Dates: start: 20200827

REACTIONS (7)
  - Candida infection [Not Recovered/Not Resolved]
  - Drug hypersensitivity [Unknown]
  - Oral fungal infection [Unknown]
  - Therapeutic product effect decreased [Not Recovered/Not Resolved]
  - Device failure [Unknown]
  - Intentional device misuse [Unknown]
  - Device delivery system issue [Unknown]

NARRATIVE: CASE EVENT DATE: 20200827
